FAERS Safety Report 16577391 (Version 1)
Quarter: 2019Q3

REPORT INFORMATION
  Report Type: Spontaneous
  Country: GB (occurrence: GB)
  Receive Date: 20190716
  Receipt Date: 20190716
  Transmission Date: 20191004
  Serious: Yes (Hospitalization, Other)
  Sender: FDA-Public Use
  Company Number: GB-SA-2019SA185901

PATIENT
  Sex: Female

DRUGS (1)
  1. LEMTRADA [Suspect]
     Active Substance: ALEMTUZUMAB
     Indication: MULTIPLE SCLEROSIS
     Dosage: UNK UNK, UNK
     Route: 041
     Dates: start: 2019

REACTIONS (18)
  - Laziness [Unknown]
  - Heart rate increased [Unknown]
  - Mobility decreased [Unknown]
  - Frustration tolerance decreased [Unknown]
  - Poor quality sleep [Unknown]
  - Asthenia [Unknown]
  - Rash [Unknown]
  - Urticaria [Unknown]
  - Nausea [Unknown]
  - Pain [Unknown]
  - Arthralgia [Unknown]
  - Cellulitis [Unknown]
  - Pyrexia [Unknown]
  - Hyperhidrosis [Unknown]
  - Feeling abnormal [Unknown]
  - Ocular discomfort [Unknown]
  - Pain in extremity [Unknown]
  - Unevaluable event [Unknown]

NARRATIVE: CASE EVENT DATE: 2019
